FAERS Safety Report 5805076-2 (Version None)
Quarter: 2008Q3

REPORT INFORMATION
  Report Type: 
  Country: None (occurrence: None)
  Receive Date: 20080709
  Receipt Date: 20080702
  Transmission Date: 20090109
  Serious: Yes (Death, Other)
  Sender: FDA-Public Use
  Company Number: US-BAXTER-2008BH006820

PATIENT
  Age: 62 Year
  Sex: Male
  Weight: 127 kg

DRUGS (1)
  1. HEPARIN SODIUM INJECTION [Suspect]
     Indication: THROMBOSIS PROPHYLAXIS
     Dosage: DOSE UNIT:UNKNOWN
     Route: 042
     Dates: start: 20080201, end: 20080101

REACTIONS (7)
  - BODY TEMPERATURE [None]
  - HYPERSENSITIVITY [None]
  - HYPOTENSION [None]
  - PERFORATED ULCER [None]
  - PNEUMONIA [None]
  - RESPIRATORY FAILURE [None]
  - SEPSIS [None]
